FAERS Safety Report 9012341 (Version 2)
Quarter: 2013Q1

REPORT INFORMATION
  Report Type: Report from Study
  Country: US (occurrence: US)
  Receive Date: 20130114
  Receipt Date: 20130125
  Transmission Date: 20140127
  Serious: No
  Sender: FDA-Public Use
  Company Number: US-VERTEX PHARMACEUTICALS INC.-2013-000489

PATIENT
  Age: 57 Year
  Sex: Female
  Weight: 113 kg

DRUGS (11)
  1. VX-950 (TELAPREVIR) [Suspect]
     Indication: HEPATITIS C
     Dosage: 750 MG, TID
     Route: 048
     Dates: start: 20121226
  2. PEGASYS [Suspect]
     Indication: HEPATITIS C
     Dosage: 180 ?G, QW
     Route: 058
     Dates: start: 20121226
  3. RIBASPHERE [Suspect]
     Indication: HEPATITIS C
     Dosage: 600MG AM, 400MG PM
     Route: 048
     Dates: start: 20121226
  4. METFORMIN HCL [Concomitant]
     Dosage: 850 MG, QD
     Route: 048
  5. LISINOPRIL [Concomitant]
     Dosage: 2.5 MG, QD
     Route: 048
  6. PROCARDIA                          /00340701/ [Concomitant]
     Dosage: 60 MG, QD
     Route: 048
  7. GLIPIZIDE [Concomitant]
     Dosage: 1 DF, QD
     Route: 048
  8. VITAMIN D /00107901/ [Concomitant]
     Dosage: 1 DF, QD
     Route: 048
  9. LISINOPRIL HCTZ [Concomitant]
     Dosage: 1 DF, QD
     Route: 048
  10. WARFARIN SODIUM [Concomitant]
     Dosage: 1 DF, QD
     Route: 048
  11. VITAMIN B12 [Concomitant]
     Dosage: 1 DF, QD
     Route: 048

REACTIONS (5)
  - Dyspnoea [Unknown]
  - Injection site bruising [Unknown]
  - Injection site erythema [Unknown]
  - Injection site pain [Unknown]
  - Fatigue [Not Recovered/Not Resolved]
